FAERS Safety Report 8339306-2 (Version None)
Quarter: 2012Q2

REPORT INFORMATION
  Report Type: 
  Country: None (occurrence: None)
  Receive Date: 20120507
  Receipt Date: 20120502
  Transmission Date: 20120825
  Serious: Yes (Other)
  Sender: FDA-Public Use
  Company Number: BR-SANOFI-AVENTIS-2012SA031209

PATIENT
  Age: 65 Year
  Sex: Female
  Weight: 80 kg

DRUGS (5)
  1. LANTUS [Suspect]
     Indication: TYPE 2 DIABETES MELLITUS
     Dosage: DOSE:18 UNIT(S)
     Route: 058
     Dates: start: 20030101
  2. AUTOPEN 24 [Suspect]
     Indication: DEVICE THERAPY
     Dates: start: 20030101
  3. ATENOLOL [Concomitant]
     Indication: BLOOD PRESSURE
     Route: 048
     Dates: start: 20030101
  4. ATORVASTATIN CALCIUM [Concomitant]
     Route: 048
     Dates: start: 20030101
  5. NOVORAPID [Concomitant]
     Indication: TYPE 2 DIABETES MELLITUS
     Dosage: DOSE: ACCORDING TO GLYCEMIA
     Route: 058
     Dates: start: 20030101

REACTIONS (3)
  - GAIT DISTURBANCE [None]
  - FOOT FRACTURE [None]
  - FALL [None]
